FAERS Safety Report 9197084 (Version 1)
Quarter: 2013Q1

REPORT INFORMATION
  Report Type: Spontaneous
  Country: US (occurrence: None)
  Receive Date: 20120709
  Receipt Date: 20120709
  Transmission Date: 20140127
  Serious: Yes (Other)
  Sender: FDA-Public Use
  Company Number: PHEH2012US002913

PATIENT
  Age: 72 Year
  Sex: Male

DRUGS (2)
  1. GLEEVEC [Suspect]
  2. INTERFERON [Suspect]

REACTIONS (1)
  - Myocardial infarction [None]
